FAERS Safety Report 16060356 (Version 1)
Quarter: 2019Q1

REPORT INFORMATION
  Report Type: Spontaneous
  Country: US (occurrence: US)
  Receive Date: 20190312
  Receipt Date: 20190312
  Transmission Date: 20190418
  Serious: Yes (Other)
  Sender: FDA-Public Use
  Company Number: US-MALLINCKRODT-T201902139

PATIENT
  Sex: Female
  Weight: 64 kg

DRUGS (2)
  1. FENTANYL CITRATE. [Suspect]
     Active Substance: FENTANYL CITRATE
     Indication: PAIN
     Dosage: 600 ?G, QID
     Route: 048
     Dates: end: 2019
  2. FENTANYL CITRATE. [Suspect]
     Active Substance: FENTANYL CITRATE
     Dosage: 600 ?G, TID
     Route: 048
     Dates: start: 201901

REACTIONS (3)
  - Gastrointestinal disorder [Unknown]
  - Aneurysm [Unknown]
  - Headache [Unknown]
